FAERS Safety Report 6191329-8 (Version None)
Quarter: 2009Q2

REPORT INFORMATION
  Report Type: 
  Country: None (occurrence: None)
  Receive Date: 20090515
  Receipt Date: 20070905
  Transmission Date: 20091009
  Serious: Yes (Hospitalization, Other)
  Sender: FDA-Public Use
  Company Number: US-ASTRAZENECA-2006UW10927

PATIENT
  Age: 12034 Day
  Sex: Female
  Weight: 56.5 kg

DRUGS (50)
  1. SEROQUEL [Suspect]
     Indication: BIPOLAR DISORDER
     Route: 048
     Dates: start: 19960101
  2. SEROQUEL [Suspect]
     Indication: SCHIZOPHRENIA
     Route: 048
     Dates: start: 19960101
  3. SEROQUEL [Suspect]
     Indication: AGITATION
     Route: 048
     Dates: start: 19960101
  4. SEROQUEL [Suspect]
     Dosage: 50-200MG
     Route: 048
     Dates: start: 19980901
  5. SEROQUEL [Suspect]
     Dosage: 50-200MG
     Route: 048
     Dates: start: 19980901
  6. SEROQUEL [Suspect]
     Dosage: 50-200MG
     Route: 048
     Dates: start: 19980901
  7. ZYPREXA [Suspect]
     Route: 048
  8. CELEXA [Concomitant]
     Route: 048
  9. LANTUS [Concomitant]
     Dosage: 10 UNITS QHS, 20 UNITS BID
     Route: 058
  10. COMBIVENT [Concomitant]
     Route: 065
  11. MESTINON [Concomitant]
     Dosage: 60-180 MG
     Route: 048
  12. ULTRAM [Concomitant]
     Route: 065
  13. OXYCODONE [Concomitant]
     Route: 048
  14. ASPIRIN [Concomitant]
     Dosage: 81-325 MG
     Route: 048
  15. CHLORDIAZEPOXIDE [Concomitant]
     Dosage: 25-50 MG
     Route: 048
  16. DIVALPROEX SODIUM [Concomitant]
     Dosage: 500-1000MG
     Route: 048
  17. GABAPENTIN [Concomitant]
     Dosage: 300-600MG
     Route: 048
  18. HALOPERIDOL [Concomitant]
     Indication: AGITATION
     Dosage: 5MG, QH PRN
     Route: 048
  19. IBUPROFEN [Concomitant]
     Dosage: 600-800MG
     Route: 048
  20. ALBUTEROL [Concomitant]
     Indication: DYSPNOEA
     Dosage: 2.5 MG, Q6H PRN
     Route: 065
  21. ALBUTEROL [Concomitant]
     Indication: WHEEZING
     Dosage: 2.5 MG, Q6H PRN
     Route: 065
  22. MILK OF MAGNESIA TAB [Concomitant]
     Dosage: 30 ML, Q 12H PRN
     Route: 048
  23. NICOTINE POLACRILEX [Concomitant]
     Dosage: 4MG, Q1H PRN
     Route: 048
  24. SERTRALINE HCL [Concomitant]
     Route: 048
  25. ZIPRASIDONE HCL [Concomitant]
     Dosage: 40-80MG
     Route: 048
  26. RISPERDAL [Concomitant]
     Dosage: 0.3-1.25MG
     Route: 065
  27. PREMARIN [Concomitant]
     Dosage: 0.3-1.25MG
     Route: 048
  28. FAMOTIDINE [Concomitant]
     Route: 048
  29. LITHIUM CITRATE [Concomitant]
     Route: 048
  30. VALPROIC ACID [Concomitant]
     Route: 048
  31. AVELOX [Concomitant]
     Route: 048
  32. NEXIUM [Concomitant]
     Route: 048
  33. PREDNISONE [Concomitant]
     Route: 048
  34. PRINIVIL [Concomitant]
     Route: 065
  35. COLACE [Concomitant]
     Route: 048
  36. FOLVITE [Concomitant]
     Route: 048
  37. DIABETA [Concomitant]
     Dosage: 1.25-5 MG
     Route: 048
  38. ATIVAN [Concomitant]
     Route: 048
  39. AUGMENTIN '125' [Concomitant]
     Route: 048
  40. BACTRIM [Concomitant]
     Route: 065
  41. BENADRYL [Concomitant]
     Route: 048
  42. CLOZARIL [Concomitant]
     Dosage: 12.5-25MG
     Route: 048
  43. INDERAL [Concomitant]
     Dosage: 10-20MG
     Route: 048
  44. ESKALITH [Concomitant]
     Dosage: 450-900MG
     Route: 048
  45. COGENTIN [Concomitant]
     Route: 065
  46. TRAZODONE HCL [Concomitant]
     Route: 065
  47. ATARAX [Concomitant]
     Route: 065
  48. SPIRIVA [Concomitant]
     Route: 065
  49. LORTAB [Concomitant]
     Dosage: 5-500MG
     Route: 048
  50. CENTRUM [Concomitant]
     Route: 065

REACTIONS (18)
  - ABDOMINAL DISCOMFORT [None]
  - BRONCHITIS [None]
  - CHRONIC OBSTRUCTIVE PULMONARY DISEASE [None]
  - CONSTIPATION [None]
  - COUGH [None]
  - DEPRESSION [None]
  - DIABETES MELLITUS [None]
  - DRUG ABUSE [None]
  - DYSPHAGIA [None]
  - HOT FLUSH [None]
  - HYPERTENSION [None]
  - INSOMNIA [None]
  - MYASTHENIA GRAVIS [None]
  - PARANOID PERSONALITY DISORDER [None]
  - PERSONALITY DISORDER [None]
  - SCHIZOAFFECTIVE DISORDER [None]
  - SUBSTANCE ABUSE [None]
  - SUICIDE ATTEMPT [None]
